FAERS Safety Report 17064895 (Version 2)
Quarter: 2019Q4

REPORT INFORMATION
  Report Type: Spontaneous
  Country: ES (occurrence: ES)
  Receive Date: 20191122
  Receipt Date: 20191204
  Transmission Date: 20200122
  Serious: Yes (Other)
  Sender: FDA-Public Use
  Company Number: ES-SA-2019SA318384

PATIENT
  Age: 56 Year
  Sex: Male

DRUGS (8)
  1. BRONOPOL [Concomitant]
     Dosage: UNK
     Dates: start: 201801
  2. CLINDAMYCIN HYDROCHLORIDE. [Suspect]
     Active Substance: CLINDAMYCIN HYDROCHLORIDE
     Indication: DERMATITIS
     Dosage: UNK
     Dates: start: 201801
  3. PREDNISONE. [Suspect]
     Active Substance: PREDNISONE
     Indication: TOXIC SKIN ERUPTION
     Dosage: UNK
     Route: 062
  4. HYDROCORTISONE SALT NOT SPECIFIED [Suspect]
     Active Substance: HYDROCORTISONE
     Dosage: UNK
     Dates: start: 201801
  5. METFORMIN [Concomitant]
     Active Substance: METFORMIN HYDROCHLORIDE
  6. SIMVASTATIN. [Concomitant]
     Active Substance: SIMVASTATIN
  7. ACETYLSALICYLIC ACID [Concomitant]
     Active Substance: ASPIRIN
  8. AMLODIPINE;OLMESARTAN [Concomitant]
     Active Substance: AMLODIPINE\OLMESARTAN

REACTIONS (8)
  - Toxic skin eruption [Recovered/Resolved]
  - Drug hypersensitivity [Recovered/Resolved]
  - Leukocytosis [Recovered/Resolved]
  - Eosinophilia [Recovered/Resolved]
  - Rebound effect [Unknown]
  - Rash [Recovered/Resolved]
  - Rash maculo-papular [Recovered/Resolved]
  - Dermatitis [Unknown]

NARRATIVE: CASE EVENT DATE: 2018
